FAERS Safety Report 12330272 (Version 1)
Quarter: 2016Q2

REPORT INFORMATION
  Report Type: Spontaneous
  Country: DE (occurrence: DE)
  Receive Date: 20160504
  Receipt Date: 20160504
  Transmission Date: 20160815
  Serious: Yes (Other)
  Sender: FDA-Public Use
  Company Number: DE-WEST-WARD PHARMACEUTICALS CORP.-DE-H14001-16-00669

PATIENT
  Age: 38 Year

DRUGS (2)
  1. ROPIVACAINE [Suspect]
     Active Substance: ROPIVACAINE
     Indication: EPIDURAL ANALGESIA
     Route: 008
  2. SUFENTANIL [Suspect]
     Active Substance: SUFENTANIL
     Indication: EPIDURAL ANALGESIA
     Route: 008

REACTIONS (4)
  - Hypoglossal nerve paresis [Recovered/Resolved]
  - Horner^s syndrome [Recovered/Resolved]
  - Off label use [Recovered/Resolved]
  - Hemiparesis [Recovered/Resolved]
